FAERS Safety Report 6309138-5 (Version None)
Quarter: 2009Q3

REPORT INFORMATION
  Report Type: 
  Country: None (occurrence: None)
  Receive Date: 20090814
  Receipt Date: 20090422
  Transmission Date: 20100115
  Serious: No
  Sender: FDA-Public Use
  Company Number: A0780147A

PATIENT
  Age: 49 Year
  Sex: Male
  Weight: 163.6 kg

DRUGS (4)
  1. COREG CR [Suspect]
     Indication: HYPERTENSION
     Dosage: 40MG IN THE MORNING
     Route: 048
     Dates: start: 20090416
  2. COREG CR [Suspect]
     Dosage: 20MG AT NIGHT
     Route: 048
     Dates: start: 20090418
  3. TEKTURNA [Concomitant]
  4. XANAX [Concomitant]

REACTIONS (4)
  - BLOOD PRESSURE INCREASED [None]
  - DIZZINESS [None]
  - DRUG INEFFECTIVE [None]
  - NAUSEA [None]
